FAERS Safety Report 7010655-3 (Version None)
Quarter: 2010Q3

REPORT INFORMATION
  Report Type: 
  Country: None (occurrence: None)
  Receive Date: 20100923
  Receipt Date: 20100914
  Transmission Date: 20110219
  Serious: Yes (Other)
  Sender: FDA-Public Use
  Company Number: US-JNJCH-2010021435

PATIENT
  Age: 7 Year
  Sex: Male
  Weight: 22 kg

DRUGS (3)
  1. BENADRYL [Suspect]
     Indication: VARICELLA
     Dosage: TEXT:THREE 1.1 MG/KG DOSES
     Route: 048
  2. CALADRYL [Suspect]
     Indication: VARICELLA
     Dosage: TEXT:^EVERYTIME IT ITCHED^
     Route: 061
  3. DICLOXACILLIN [Concomitant]
     Indication: INFECTION
     Dosage: TEXT:UNKNOWN
     Route: 065

REACTIONS (3)
  - DRUG TOXICITY [None]
  - OVERDOSE [None]
  - TOXIC ENCEPHALOPATHY [None]
